FAERS Safety Report 19134345 (Version 7)
Quarter: 2025Q3

REPORT INFORMATION
  Report Type: Spontaneous
  Country: BR (occurrence: BR)
  Receive Date: 20210414
  Receipt Date: 20250716
  Transmission Date: 20251020
  Serious: Yes (Other)
  Sender: NOVARTIS
  Company Number: NVSC2021BR076095

PATIENT
  Age: 14 Month
  Sex: Female
  Weight: 8.35 kg

DRUGS (7)
  1. ZOLGENSMA [Suspect]
     Active Substance: ONASEMNOGENE ABEPARVOVEC-XIOI
     Indication: Spinal muscular atrophy
     Route: 042
     Dates: start: 20210322, end: 20210322
  2. PREDNISOLONE [Concomitant]
     Active Substance: PREDNISOLONE
     Indication: Spinal muscular atrophy
     Dosage: 1 MG/KG, QD
     Route: 065
  3. PREDNISOLONE [Concomitant]
     Active Substance: PREDNISOLONE
     Dosage: 1.5 MG/KG, QD
     Route: 065
     Dates: start: 20210326
  4. PREDNISOLONE [Concomitant]
     Active Substance: PREDNISOLONE
     Route: 065
  5. FUROSEMIDE [Concomitant]
     Active Substance: FUROSEMIDE
     Indication: Product used for unknown indication
     Dosage: 08 MG, QD
     Route: 042
  6. Ad til [Concomitant]
     Indication: Product used for unknown indication
     Dosage: UNK, QD (10)
     Route: 048
  7. Vitamina d2 [Concomitant]
     Indication: Product used for unknown indication
     Dosage: UNK, QD (2)
     Route: 048

REACTIONS (12)
  - Haemolytic uraemic syndrome [Not Recovered/Not Resolved]
  - Haematuria [Not Recovered/Not Resolved]
  - Pyuria [Recovered/Resolved]
  - Haemolysis [Recovered/Resolved]
  - Thrombotic microangiopathy [Recovered/Resolved]
  - Chromaturia [Unknown]
  - Hypertension [Recovered/Resolved]
  - Hypotension [Recovered/Resolved]
  - Oliguria [Recovering/Resolving]
  - Aspartate aminotransferase increased [Not Recovered/Not Resolved]
  - Alanine aminotransferase increased [Not Recovered/Not Resolved]
  - Nasopharyngitis [Unknown]

NARRATIVE: CASE EVENT DATE: 20210329
